FAERS Safety Report 8581966-5 (Version None)
Quarter: 2012Q3

REPORT INFORMATION
  Report Type: 
  Country: None (occurrence: None)
  Receive Date: 20120809
  Receipt Date: 20120731
  Transmission Date: 20120928
  Serious: Yes (Other)
  Sender: FDA-Public Use
  Company Number: US-JNJFOC-20120802259

PATIENT
  Age: 74 Year
  Sex: Male
  Weight: 78.47 kg

DRUGS (7)
  1. METOPROLOL TARTRATE [Concomitant]
     Indication: CORONARY ARTERY DISEASE
     Route: 065
     Dates: start: 20000101
  2. ASPIRIN [Concomitant]
     Indication: CARDIAC DISORDER
     Route: 065
     Dates: start: 20000101
  3. EXTRA STRENGTH TYLENOL [Suspect]
     Indication: MONARTHRITIS
     Route: 048
     Dates: start: 20120729
  4. EXTRA STRENGTH TYLENOL [Suspect]
     Dosage: 2 CAPLETS, EVERY 6-8 HOURS
     Route: 048
     Dates: start: 20110101, end: 20120704
  5. LIPITOR [Concomitant]
     Indication: BLOOD CHOLESTEROL INCREASED
     Route: 065
     Dates: start: 20070101
  6. FLOMAX [Concomitant]
     Indication: BENIGN PROSTATIC HYPERPLASIA
     Route: 065
     Dates: start: 20000101
  7. ZOLOFT [Concomitant]
     Route: 065
     Dates: start: 20070101

REACTIONS (1)
  - BRONCHIECTASIS [None]
